FAERS Safety Report 15651556 (Version 1)
Quarter: 2018Q4

REPORT INFORMATION
  Report Type: Spontaneous
  Country: DE (occurrence: DE)
  Receive Date: 20181123
  Receipt Date: 20181123
  Transmission Date: 20190205
  Serious: Yes (Hospitalization, Other)
  Sender: FDA-Public Use
  Company Number: DE-PFIZER INC-2018477526

PATIENT
  Age: 32 Year
  Sex: Female

DRUGS (5)
  1. SYNARELA [Suspect]
     Active Substance: NAFARELIN ACETATE
     Indication: MANAGEMENT OF REPRODUCTION
     Dosage: UNK
  2. UTROGEST [Suspect]
     Active Substance: PROGESTERONE
     Indication: MANAGEMENT OF REPRODUCTION
     Dosage: UNK
  3. BEMFOLA [Suspect]
     Active Substance: FOLLITROPIN
     Indication: MANAGEMENT OF REPRODUCTION
     Dosage: UNK
  4. L-THYROXINE [LEVOTHYROXINE SODIUM] [Concomitant]
  5. OVITRELLE [Suspect]
     Active Substance: CHORIOGONADOTROPIN ALFA
     Indication: MANAGEMENT OF REPRODUCTION
     Dosage: UNK

REACTIONS (4)
  - Abdominal pain lower [Recovered/Resolved]
  - Ascites [Recovered/Resolved]
  - Ovarian hyperstimulation syndrome [Recovered/Resolved]
  - Ovarian enlargement [Recovered/Resolved]

NARRATIVE: CASE EVENT DATE: 20180905
